FAERS Safety Report 24202288 (Version 2)
Quarter: 2024Q3

REPORT INFORMATION
  Report Type: Spontaneous
  Country: JP (occurrence: JP)
  Receive Date: 20240812
  Receipt Date: 20240822
  Transmission Date: 20241016
  Serious: Yes (Other)
  Sender: SANOFI AVENTIS
  Company Number: JP-SAKK-02165948

PATIENT
  Sex: Female

DRUGS (10)
  1. AMARYL [Suspect]
     Active Substance: GLIMEPIRIDE
     Indication: Diabetes mellitus
     Dosage: 0.5 MG
     Route: 048
     Dates: start: 2018
  2. AMARYL [Suspect]
     Active Substance: GLIMEPIRIDE
     Dosage: 1 MG, BID
     Route: 048
     Dates: start: 2024
  3. AMARYL [Suspect]
     Active Substance: GLIMEPIRIDE
     Dosage: 0.5 MG, BID
     Route: 048
     Dates: start: 2024
  4. AMARYL [Suspect]
     Active Substance: GLIMEPIRIDE
     Dosage: 1 MG, QD
     Route: 048
  5. AMARYL [Suspect]
     Active Substance: GLIMEPIRIDE
     Dosage: 0.5 MG
     Route: 048
     Dates: start: 20240805
  6. AMARYL [Suspect]
     Active Substance: GLIMEPIRIDE
     Dosage: 0.5 MG, BID
     Route: 048
  7. AMARYL [Suspect]
     Active Substance: GLIMEPIRIDE
     Dosage: 0.5 MG, QD
     Route: 048
  8. TENELIGLIPTIN [Concomitant]
     Active Substance: TENELIGLIPTIN
     Indication: Diabetes mellitus
     Dosage: 6 TABLETS
     Route: 048
  9. ADALAT [Concomitant]
     Active Substance: NIFEDIPINE
     Indication: Blood pressure measurement
     Route: 065
  10. JANUVIA [Concomitant]
     Active Substance: SITAGLIPTIN PHOSPHATE
     Indication: Diabetes mellitus
     Route: 065

REACTIONS (13)
  - Renal impairment [Unknown]
  - Thyroid disorder [Unknown]
  - Blood pressure abnormal [Unknown]
  - Weight loss poor [Unknown]
  - Hypoacusis [Unknown]
  - Constipation [Unknown]
  - Blood glucose increased [Unknown]
  - Hypoglycaemia [Unknown]
  - Blood glucose fluctuation [Unknown]
  - Therapeutic response increased [Unknown]
  - Intentional product misuse [Unknown]
  - Product communication issue [Unknown]
  - Drug ineffective [Unknown]

NARRATIVE: CASE EVENT DATE: 20240101
